FAERS Safety Report 14180897 (Version 1)
Quarter: 2017Q4

REPORT INFORMATION
  Report Type: Spontaneous
  Country: DE (occurrence: DE)
  Receive Date: 20171110
  Receipt Date: 20171110
  Transmission Date: 20180321
  Serious: Yes (Other)
  Sender: FDA-Public Use
  Company Number: DE-TEVA-823813GER

PATIENT
  Age: 51 Year
  Sex: Male
  Weight: 100 kg

DRUGS (1)
  1. CIPROFLOXACIN 250 MG [Suspect]
     Active Substance: CIPROFLOXACIN
     Indication: CYSTITIS NONINFECTIVE
     Dosage: 500 MILLIGRAM DAILY;
     Route: 048
     Dates: start: 20160919

REACTIONS (16)
  - Joint stiffness [Unknown]
  - Abdominal pain lower [Unknown]
  - Tendon pain [Unknown]
  - Arthralgia [Recovered/Resolved]
  - Pain in extremity [Unknown]
  - Sleep disorder [Unknown]
  - Tendon pain [Recovered/Resolved]
  - Myalgia [Recovered/Resolved]
  - Musculoskeletal pain [Unknown]
  - Disturbance in attention [Unknown]
  - Back pain [Unknown]
  - Depression [Unknown]
  - Suicidal ideation [Unknown]
  - Visual impairment [Unknown]
  - Arthralgia [Unknown]
  - Memory impairment [Unknown]

NARRATIVE: CASE EVENT DATE: 20160919
